FAERS Safety Report 19929465 (Version 2)
Quarter: 2021Q4

REPORT INFORMATION
  Report Type: Spontaneous
  Country: NL (occurrence: NL)
  Receive Date: 20211007
  Receipt Date: 20211013
  Transmission Date: 20220303
  Serious: Yes (Other)
  Sender: FDA-Public Use
  Company Number: NL-SA-SAC20211006001069

PATIENT
  Sex: Male
  Weight: 7.8 kg

DRUGS (2)
  1. LEVOCETIRIZINE [Suspect]
     Active Substance: LEVOCETIRIZINE
     Indication: Hypersensitivity
     Dosage: 2.5 DF, BID
     Route: 065
     Dates: start: 20210926
  2. CHOLECALCIFEROL [Concomitant]
     Active Substance: CHOLECALCIFEROL
     Dosage: UNK
     Route: 065

REACTIONS (3)
  - Loss of consciousness [Recovering/Resolving]
  - Breath holding [Unknown]
  - Somnolence [Recovering/Resolving]
